FAERS Safety Report 9508512 (Version 1)
Quarter: 2013Q3

REPORT INFORMATION
  Report Type: Report from Study
  Country: US (occurrence: US)
  Receive Date: 20130909
  Receipt Date: 20130909
  Transmission Date: 20140515
  Serious: Yes (Death, Other)
  Sender: FDA-Public Use
  Company Number: US-GENZYME-THYM-1004107

PATIENT
  Age: 39 Year
  Sex: Male

DRUGS (6)
  1. THYMOGLOBULIN [Suspect]
     Indication: BONE MARROW CONDITIONING REGIMEN
     Dosage: 3 MG/KG, QD ON DAY-5 (DOSE LEVEL 1)
     Route: 065
  2. 2-CDA [Suspect]
     Indication: BONE MARROW CONDITIONING REGIMEN
     Dosage: 5 MG/M2, QD FROM DAY -10 TO -6 (DOSE LEVEL 1)
     Route: 042
  3. THIOTEPA [Suspect]
     Indication: BONE MARROW CONDITIONING REGIMEN
     Dosage: 200 MG/M2, QD FROM DAY -5 TO -3 (DOSE LEVEL 1)
     Route: 042
  4. CICLOSPORIN [Concomitant]
     Indication: IMMUNOSUPPRESSION
     Dosage: 2.5 MG/KG, BID ON DAY-1
     Route: 042
  5. CICLOSPORIN [Concomitant]
     Dosage: 1.5 MG/KG, BID WITH TRANSITION TO ORAL DOSING
     Route: 042
  6. CICLOSPORIN [Concomitant]
     Dosage: 1.5 MG/KG, BID
     Route: 048

REACTIONS (6)
  - Respiratory failure [Fatal]
  - Acute respiratory distress syndrome [Fatal]
  - Tubulointerstitial nephritis [Unknown]
  - Neutropenia [Unknown]
  - Thrombocytopenia [Unknown]
  - Anaemia [Unknown]
